FAERS Safety Report 9240374 (Version 1)
Quarter: 2013Q2

REPORT INFORMATION
  Report Type: Spontaneous
  Country: FR (occurrence: FR)
  Receive Date: 20130418
  Receipt Date: 20130418
  Transmission Date: 20140414
  Serious: Yes (Hospitalization, Other)
  Sender: FDA-Public Use
  Company Number: FR-PFIZER INC-2013115677

PATIENT
  Age: 57 Year
  Sex: Female

DRUGS (1)
  1. SALAZOPYRINE [Suspect]
     Indication: ANKYLOSING SPONDYLITIS
     Dosage: UNK
     Route: 048
     Dates: start: 1993, end: 2005

REACTIONS (4)
  - Pulmonary fibrosis [Not Recovered/Not Resolved]
  - Bronchiectasis [Unknown]
  - Chronic obstructive pulmonary disease [Unknown]
  - Pulmonary arterial hypertension [Unknown]
